FAERS Safety Report 6177105-0 (Version None)
Quarter: 2009Q2

REPORT INFORMATION
  Report Type: 
  Country: None (occurrence: None)
  Receive Date: 20090430
  Receipt Date: 20090430
  Transmission Date: 20091009
  Serious: Yes (Life-Threatening)
  Sender: FDA-Public Use
  Company Number: None

PATIENT
  Age: 70 Year
  Sex: Male
  Weight: 78.0187 kg

DRUGS (1)
  1. CRESTOR [Suspect]
     Dosage: 20 MG DAILY -ONCE- PO
     Route: 048

REACTIONS (1)
  - BLOOD GLUCOSE INCREASED [None]
